FAERS Safety Report 24646854 (Version 1)
Quarter: 2024Q4

REPORT INFORMATION
  Report Type: Spontaneous
  Country: US (occurrence: None)
  Receive Date: 20241120
  Receipt Date: 20241120
  Transmission Date: 20250114
  Serious: Yes (Other)
  Sender: Public
  Company Number: None

PATIENT
  Sex: Female

DRUGS (1)
  1. SKYRIZI [Suspect]
     Active Substance: RISANKIZUMAB-RZAA
     Indication: Psoriasis
     Dosage: FREQ: INJECT ONE 150MG PEN SUBCUTANEOUSLY EVERY 12 WEEK
     Route: 058
     Dates: start: 20220407

REACTIONS (3)
  - Hernia [None]
  - Gastrooesophageal reflux disease [None]
  - Anxiety [None]
